FAERS Safety Report 19599692 (Version 5)
Quarter: 2021Q3

REPORT INFORMATION
  Report Type: Spontaneous
  Country: US (occurrence: US)
  Receive Date: 20210722
  Receipt Date: 20210930
  Transmission Date: 20211014
  Serious: Yes (Other)
  Sender: FDA-Public Use
  Company Number: US-PFIZER INC-2021868305

PATIENT
  Age: 77 Year
  Sex: Female
  Weight: 58.51 kg

DRUGS (2)
  1. PREMARIN [Suspect]
     Active Substance: ESTROGENS, CONJUGATED
     Dosage: 0.625 MG, 3X/DAY
  2. PREMARIN [Suspect]
     Active Substance: ESTROGENS, CONJUGATED
     Indication: URINARY TRACT DISORDER
     Dosage: 0.625 MG/G, A SMALL AMOUNT EACH TIME 3 TIMES/ WEEK

REACTIONS (4)
  - Anxiety [Unknown]
  - Body height decreased [Unknown]
  - Off label use [Unknown]
  - Diabetes mellitus [Unknown]
